FAERS Safety Report 14535187 (Version 1)
Quarter: 2018Q1

REPORT INFORMATION
  Report Type: Spontaneous
  Country: US (occurrence: US)
  Receive Date: 20180214
  Receipt Date: 20180214
  Transmission Date: 20180509
  Serious: No
  Sender: FDA-Public Use
  Company Number: None

PATIENT
  Age: 36 Year
  Sex: Female
  Weight: 53.1 kg

DRUGS (16)
  1. LEXAPRO [Concomitant]
     Active Substance: ESCITALOPRAM OXALATE
  2. CALCIUM WITH VIT D [Concomitant]
  3. IRON [Concomitant]
     Active Substance: IRON
  4. HYDROCODONE 10/325 [Suspect]
     Active Substance: ACETAMINOPHEN\HYDROCODONE BITARTRATE
     Indication: MUSCLE SPASTICITY
  5. GABAPENTIN. [Concomitant]
     Active Substance: GABAPENTIN
  6. MULTI VIT [Concomitant]
  7. VIT B COMPLEX [Concomitant]
  8. HYDROCODONE 10/325 [Suspect]
     Active Substance: ACETAMINOPHEN\HYDROCODONE BITARTRATE
     Indication: NEUROPATHY PERIPHERAL
  9. ZOFRAN [Concomitant]
     Active Substance: ONDANSETRON HYDROCHLORIDE
  10. TUMS [Concomitant]
     Active Substance: CALCIUM CARBONATE
  11. ADDERALL XR [Concomitant]
     Active Substance: AMPHETAMINE ASPARTATE\AMPHETAMINE SULFATE\DEXTROAMPHETAMINE SACCHARATE\DEXTROAMPHETAMINE SULFATE
  12. XANAX [Concomitant]
     Active Substance: ALPRAZOLAM
  13. IRON [Concomitant]
     Active Substance: IRON
  14. HYDROCODONE 10/325 [Suspect]
     Active Substance: ACETAMINOPHEN\HYDROCODONE BITARTRATE
     Indication: CONNECTIVE TISSUE DISORDER
  15. NORCO [Concomitant]
     Active Substance: ACETAMINOPHEN\HYDROCODONE BITARTRATE
  16. IBUPROFEN. [Concomitant]
     Active Substance: IBUPROFEN

REACTIONS (5)
  - Nausea [None]
  - Drug ineffective [None]
  - Product quality issue [None]
  - Product substitution issue [None]
  - Fatigue [None]

NARRATIVE: CASE EVENT DATE: 20171223
